FAERS Safety Report 14816830 (Version 1)
Quarter: 2018Q2

REPORT INFORMATION
  Report Type: Spontaneous
  Country: DE (occurrence: DE)
  Receive Date: 20180426
  Receipt Date: 20180426
  Transmission Date: 20180711
  Serious: Yes (Hospitalization)
  Sender: FDA-Public Use
  Company Number: DE-BAUSCH-BL-2018-011574

PATIENT
  Age: 69 Year
  Sex: Female
  Weight: 84.5 kg

DRUGS (5)
  1. L-THYROXIN [Concomitant]
     Active Substance: LEVOTHYROXINE SODIUM
     Indication: PRODUCT USED FOR UNKNOWN INDICATION
     Dosage: 1-0-0-0, TABLETTEN
     Route: 048
  2. PANTOZOL 40 MG [Concomitant]
     Indication: PRODUCT USED FOR UNKNOWN INDICATION
     Dosage: 1-0-0-0, TABLETTEN
     Route: 048
  3. ASPIRIN. [Concomitant]
     Active Substance: ASPIRIN
     Indication: PRODUCT USED FOR UNKNOWN INDICATION
     Dosage: 1-0-0-0, TABLETTEN
     Route: 048
  4. LENALIDOMID [Suspect]
     Active Substance: LENALIDOMIDE
     Indication: PRODUCT USED FOR UNKNOWN INDICATION
     Dosage: ACCORDING TO SCHEME
     Route: 048
  5. DEXAMETHASON [Suspect]
     Active Substance: DEXAMETHASONE
     Indication: PRODUCT USED FOR UNKNOWN INDICATION
     Dosage: ACCORDING TO SCHEME
     Route: 048

REACTIONS (7)
  - Back pain [Unknown]
  - Chest pain [Unknown]
  - Pneumonia [Unknown]
  - Hepatic enzyme increased [Unknown]
  - Plasma cell myeloma [Unknown]
  - Cough [Unknown]
  - General physical health deterioration [Unknown]
